FAERS Safety Report 15552909 (Version 1)
Quarter: 2018Q4

REPORT INFORMATION
  Report Type: Spontaneous
  Country: US (occurrence: US)
  Receive Date: 20181025
  Receipt Date: 20181025
  Transmission Date: 20190205
  Serious: Yes (Hospitalization, Other)
  Sender: FDA-Public Use
  Company Number: US-BAXTER-2018BAX026096

PATIENT
  Age: 82 Year
  Sex: Female
  Weight: 67.5 kg

DRUGS (4)
  1. PLASMA [Concomitant]
     Active Substance: HUMAN PLASMA
     Indication: HAEMOLYTIC URAEMIC SYNDROME
     Dosage: 4 SESSIONS
     Route: 065
  2. QUETIAPINE. [Concomitant]
     Active Substance: QUETIAPINE
     Indication: PRODUCT USED FOR UNKNOWN INDICATION
     Route: 048
  3. LEVOFLOXACIN. [Suspect]
     Active Substance: LEVOFLOXACIN
     Indication: ESCHERICHIA URINARY TRACT INFECTION
     Dosage: ON HOSPITAL DAY 4
     Route: 048
  4. LEVOFLOXACIN HEMIHYDRATE [Suspect]
     Active Substance: LEVOFLOXACIN
     Indication: ESCHERICHIA URINARY TRACT INFECTION
     Dosage: ON HOSPITAL DAY 8
     Route: 042

REACTIONS (4)
  - Neurotoxicity [Recovered/Resolved]
  - Muscle twitching [Recovered/Resolved]
  - Condition aggravated [Recovered/Resolved]
  - Myoclonus [Recovered/Resolved]
